FAERS Safety Report 10380447 (Version 9)
Quarter: 2015Q2

REPORT INFORMATION
  Report Type: Spontaneous
  Country: US (occurrence: US)
  Receive Date: 20140813
  Receipt Date: 20150525
  Transmission Date: 20150821
  Serious: Yes (Other)
  Sender: FDA-Public Use
  Company Number: US-JNJFOC-20140807386

PATIENT
  Age: 53 Year
  Sex: Female
  Weight: 111.13 kg

DRUGS (3)
  1. REMICADE [Suspect]
     Active Substance: INFLIXIMAB
     Indication: CROHN^S DISEASE
     Dosage: APPROXIMATE TOTAL NUMBER OF INFUSIONS PATIENT RECEIVED WAS 05
     Route: 042
     Dates: start: 20140113, end: 20140701
  2. IMURAN [Suspect]
     Active Substance: AZATHIOPRINE
     Indication: PRODUCT USED FOR UNKNOWN INDICATION
     Route: 048
     Dates: start: 200809
  3. REMICADE [Suspect]
     Active Substance: INFLIXIMAB
     Indication: COLITIS ULCERATIVE
     Dosage: APPROXIMATE TOTAL NUMBER OF INFUSIONS PATIENT RECEIVED WAS 05
     Route: 042
     Dates: start: 20140113, end: 20140701

REACTIONS (8)
  - Seborrhoeic keratosis [Unknown]
  - Neoplasm skin [Unknown]
  - Skin dystrophy [Unknown]
  - Actinic keratosis [Unknown]
  - Dermal cyst [Unknown]
  - Malignant melanoma [Unknown]
  - Superficial spreading melanoma stage unspecified [Unknown]
  - Skin discolouration [Unknown]

NARRATIVE: CASE EVENT DATE: 20140717
